FAERS Safety Report 4627957-8 (Version None)
Quarter: 2005Q2

REPORT INFORMATION
  Report Type: 
  Country: None (occurrence: None)
  Receive Date: 20050404
  Receipt Date: 20050404
  Transmission Date: 20051028
  Serious: Yes (Other)
  Sender: FDA-Public Use
  Company Number: None

PATIENT

DRUGS (1)
  1. HALOPERIDOL [Suspect]
     Dosage: ORAL
     Route: 048

REACTIONS (1)
  - MEDICATION ERROR [None]
